FAERS Safety Report 14444799 (Version 1)
Quarter: 2018Q1

REPORT INFORMATION
  Report Type: Spontaneous
  Country: US (occurrence: US)
  Receive Date: 20180126
  Receipt Date: 20180126
  Transmission Date: 20180509
  Serious: Yes (Other)
  Sender: FDA-Public Use
  Company Number: US-ABBVIE-17K-163-2013379-00

PATIENT
  Age: 56 Year
  Sex: Female

DRUGS (9)
  1. PREMARIN [Concomitant]
     Active Substance: ESTROGENS, CONJUGATED
     Indication: PRODUCT USED FOR UNKNOWN INDICATION
  2. METHOTREXATE. [Concomitant]
     Active Substance: METHOTREXATE
     Indication: PSORIASIS
  3. RHEUMATE [Concomitant]
     Active Substance: LEVOMEFOLIC ACID\METHYLCOBALAMIN\TURMERIC
     Indication: PRODUCT USED FOR UNKNOWN INDICATION
  4. CYMBALTA [Concomitant]
     Active Substance: DULOXETINE HYDROCHLORIDE
     Indication: PRODUCT USED FOR UNKNOWN INDICATION
  5. NUCYNTA [Concomitant]
     Active Substance: TAPENTADOL HYDROCHLORIDE
     Indication: PRODUCT USED FOR UNKNOWN INDICATION
  6. BUTRANS [Concomitant]
     Active Substance: BUPRENORPHINE
     Indication: PRODUCT USED FOR UNKNOWN INDICATION
  7. LODIL [Concomitant]
     Indication: PRODUCT USED FOR UNKNOWN INDICATION
  8. HUMIRA [Suspect]
     Active Substance: ADALIMUMAB
     Indication: PSORIASIS
     Route: 058
     Dates: start: 20170525, end: 20170525
  9. HUMIRA [Suspect]
     Active Substance: ADALIMUMAB
     Route: 058
     Dates: start: 20170601, end: 20170601

REACTIONS (6)
  - Sputum discoloured [Recovered/Resolved]
  - Muscle spasms [Recovered/Resolved]
  - Cardiac failure congestive [Unknown]
  - Wheezing [Recovered/Resolved]
  - Cough [Recovered/Resolved]
  - Fluid retention [Recovered/Resolved]

NARRATIVE: CASE EVENT DATE: 20170604
